FAERS Safety Report 17517768 (Version 2)
Quarter: 2020Q1

REPORT INFORMATION
  Report Type: Report from Study
  Country: IL (occurrence: IL)
  Receive Date: 20200309
  Receipt Date: 20200320
  Transmission Date: 20200409
  Serious: Yes (Hospitalization, Other)
  Sender: FDA-Public Use
  Company Number: IL-BIOGEN-2020BI00846022

PATIENT
  Age: 34 Year
  Sex: Male

DRUGS (1)
  1. TYSABRI [Suspect]
     Active Substance: NATALIZUMAB
     Indication: MULTIPLE SCLEROSIS
     Dosage: INFUSED OVER 1 HOUR
     Route: 042
     Dates: start: 20181225

REACTIONS (11)
  - Ulcer haemorrhage [Recovered/Resolved]
  - Helicobacter infection [Recovered/Resolved]
  - Asthenia [Unknown]
  - Vision blurred [Unknown]
  - Oesophageal candidiasis [Unknown]
  - Dyspnoea [Unknown]
  - Speech disorder [Unknown]
  - Constipation [Unknown]
  - General physical health deterioration [Unknown]
  - Haemoglobin decreased [Unknown]
  - Abdominal pain [Unknown]

NARRATIVE: CASE EVENT DATE: 202002
